FAERS Safety Report 5738327-3 (Version None)
Quarter: 2008Q2

REPORT INFORMATION
  Report Type: 
  Country: None (occurrence: None)
  Receive Date: 20080513
  Receipt Date: 20080506
  Transmission Date: 20081010
  Serious: Yes (Hospitalization)
  Sender: FDA-Public Use
  Company Number: 2008SP008401

PATIENT
  Age: 69 Year
  Sex: Male
  Weight: 61 kg

DRUGS (8)
  1. TEMODAR [Suspect]
     Indication: GLIOBLASTOMA MULTIFORME
     Dosage: 75 MG/M2
     Dates: start: 20080328, end: 20080417
  2. TEMODAR [Suspect]
     Indication: GLIOBLASTOMA MULTIFORME
     Dosage: 75 MG/M2
     Dates: start: 20080229
  3. DIGOXIN [Suspect]
     Indication: DRUG USE FOR UNKNOWN INDICATION
  4. FUROSEMIDE [Suspect]
     Indication: DRUG USE FOR UNKNOWN INDICATION
  5. THEOPHYLLINE [Suspect]
     Indication: DRUG USE FOR UNKNOWN INDICATION
  6. CARBAMAZEPINE [Suspect]
     Indication: DRUG USE FOR UNKNOWN INDICATION
  7. DEXAMETHASONE TAB [Suspect]
     Indication: DRUG USE FOR UNKNOWN INDICATION
  8. COMPAZINE [Suspect]
     Indication: DRUG USE FOR UNKNOWN INDICATION

REACTIONS (8)
  - ANOREXIA [None]
  - BRAIN OEDEMA [None]
  - GAIT DISTURBANCE [None]
  - HYPOXIA [None]
  - MALIGNANT NEOPLASM PROGRESSION [None]
  - MUSCULAR WEAKNESS [None]
  - NAUSEA [None]
  - VOMITING [None]
